FAERS Safety Report 9901670 (Version 2)
Quarter: 2014Q1

REPORT INFORMATION
  Report Type: Report from Study
  Country: MX (occurrence: MX)
  Receive Date: 20140217
  Receipt Date: 20140217
  Transmission Date: 20141002
  Serious: Yes (Hospitalization, Other)
  Sender: FDA-Public Use
  Company Number: PHHY2009MX31420

PATIENT
  Age: 77 Year
  Sex: Female
  Weight: 73.5 kg

DRUGS (7)
  1. CO-DIOVAN [Suspect]
     Indication: HYPERTENSION
     Dosage: 1 DF (80/12.5 MG), DAILY
     Route: 048
     Dates: start: 2007, end: 201311
  2. CO-DIOVAN [Suspect]
     Dosage: 1.5 DF (80/12.5 MG), DAILY
     Route: 048
     Dates: start: 201311, end: 201312
  3. CO-DIOVAN [Suspect]
     Dosage: 1 DF (80/12.5 MG), DAILY
     Route: 048
     Dates: start: 201312
  4. CLONAZEPAM [Concomitant]
     Indication: SLEEP DISORDER
     Dosage: 2 MG, DAILY
     Route: 048
     Dates: start: 201306
  5. ZENHALE [Concomitant]
     Indication: ASTHMA
     Dosage: 2 UKN, BID
     Route: 055
  6. DILACORAN [Concomitant]
     Indication: HYPERTENSION
     Dosage: 1 DF, DAILY
     Route: 048
     Dates: start: 201401
  7. ONBRIZE [Concomitant]
     Indication: ASTHMA
     Dosage: 150 UG, UNK
     Route: 055
     Dates: end: 201312

REACTIONS (8)
  - Salmonellosis [Recovered/Resolved]
  - Kidney infection [Recovered/Resolved]
  - Blood pressure abnormal [Unknown]
  - Mobility decreased [Unknown]
  - Urticaria [Not Recovered/Not Resolved]
  - Dizziness [Unknown]
  - Oedema peripheral [Not Recovered/Not Resolved]
  - Wrong technique in drug usage process [Recovered/Resolved]
